FAERS Safety Report 6791135-7 (Version None)
Quarter: 2010Q2

REPORT INFORMATION
  Report Type: 
  Country: None (occurrence: None)
  Receive Date: 20100624
  Receipt Date: 20100615
  Transmission Date: 20101027
  Serious: Yes (Hospitalization)
  Sender: FDA-Public Use
  Company Number: DE-ELI_LILLY_AND_COMPANY-DE201005003483

PATIENT
  Sex: Male
  Weight: 73 kg

DRUGS (4)
  1. ALIMTA [Suspect]
     Indication: NON-SMALL CELL LUNG CANCER
     Dosage: 500 MG/M2, UNK
     Route: 042
     Dates: start: 20100428, end: 20100428
  2. VITAMIN B-12 [Concomitant]
     Dosage: 1 UG, UNKNOWN
     Route: 030
     Dates: start: 20100414
  3. FOLIC ACID [Concomitant]
     Dosage: 0.4 UG, UNKNOWN
     Route: 048
     Dates: start: 20100414
  4. FORTECORTIN [Concomitant]
     Dosage: 8 MG, UNKNOWN
     Route: 048
     Dates: start: 20100428, end: 20100429

REACTIONS (3)
  - C-REACTIVE PROTEIN INCREASED [None]
  - PYREXIA [None]
  - RASH [None]
